FAERS Safety Report 7352717-7 (Version None)
Quarter: 2011Q1

REPORT INFORMATION
  Report Type: 
  Country: None (occurrence: None)
  Receive Date: 20110315
  Receipt Date: 20110308
  Transmission Date: 20110831
  Serious: Yes (Death, Life-Threatening, Hospitalization)
  Sender: FDA-Public Use
  Company Number: GB-PFIZER INC-2011052782

PATIENT
  Age: 49 Year
  Sex: Female
  Weight: 89 kg

DRUGS (7)
  1. TRISEQUENS [Concomitant]
     Indication: ENDOCRINE DISORDER
  2. LEVOTHYROXINE SODIUM [Concomitant]
     Indication: HYPOTHYROIDISM
     Dosage: 100 UG, 1X/DAY
     Dates: start: 19891215
  3. LANSOPRAZOLE [Concomitant]
     Indication: DYSPEPSIA
     Dosage: 30 MG/DAILY
     Dates: start: 20000427
  4. HYDROCORTISONE [Concomitant]
     Indication: BLOOD CORTICOTROPHIN DECREASED
     Dosage: 15 MG, DAY
     Dates: start: 19891215
  5. TRISEQUENS [Concomitant]
     Indication: HYPOGONADISM FEMALE
     Dosage: 1 TABLET DAILY
     Route: 048
     Dates: start: 19891215
  6. SOMATROPIN [Suspect]
     Indication: GROWTH HORMONE DEFICIENCY
     Dosage: 0.6 MG/DAY/7 INJECTIONS/WEEK
     Dates: start: 20030410
  7. OXYBUTYNIN [Concomitant]
     Indication: HYPERTONIC BLADDER
     Dosage: 5 MG, 2X/DAY
     Dates: start: 20020228

REACTIONS (1)
  - DEATH [None]
